FAERS Safety Report 14952362 (Version 2)
Quarter: 2018Q3

REPORT INFORMATION
  Report Type: Spontaneous
  Country: US (occurrence: US)
  Receive Date: 20180530
  Receipt Date: 20180724
  Transmission Date: 20181010
  Serious: No
  Sender: FDA-Public Use
  Company Number: US-PFIZER INC-2018214997

PATIENT
  Age: 52 Year
  Sex: Female

DRUGS (3)
  1. SILVADENE [Suspect]
     Active Substance: SILVER SULFADIAZINE
     Indication: WOUND
  2. SILVADENE [Suspect]
     Active Substance: SILVER SULFADIAZINE
     Indication: CHEMICAL BURN OF SKIN
     Dosage: UNK, DAILY (THREE TO FOUR TIMES A DAY (6 TO 8 HOURS))
     Route: 061
  3. ZYRTEC [Concomitant]
     Active Substance: CETIRIZINE HYDROCHLORIDE
     Indication: HYPERSENSITIVITY
     Dosage: 10 MG, UNK

REACTIONS (2)
  - Application site discolouration [Recovering/Resolving]
  - Drug ineffective [Unknown]
